FAERS Safety Report 8240044-5 (Version None)
Quarter: 2012Q1

REPORT INFORMATION
  Report Type: 
  Country: None (occurrence: None)
  Receive Date: 20120328
  Receipt Date: 20120321
  Transmission Date: 20120608
  Serious: Yes (Hospitalization)
  Sender: FDA-Public Use
  Company Number: JP-SANOFI-AVENTIS-2012SA020001

PATIENT
  Age: 91 Year
  Sex: Female

DRUGS (3)
  1. PLAVIX [Suspect]
     Route: 048
     Dates: start: 20111217
  2. ASPIRIN [Concomitant]
     Route: 065
     Dates: start: 20110101
  3. PLAVIX [Suspect]
     Indication: STENT PLACEMENT
     Route: 048
     Dates: start: 20110101

REACTIONS (5)
  - ANAEMIA [None]
  - DIVERTICULUM OESOPHAGEAL [None]
  - HAEMATEMESIS [None]
  - ABDOMINAL PAIN UPPER [None]
  - MELAENA [None]
